FAERS Safety Report 16911759 (Version 2)
Quarter: 2020Q2

REPORT INFORMATION
  Report Type: Report from Study
  Country: US (occurrence: US)
  Receive Date: 20191014
  Receipt Date: 20200604
  Transmission Date: 20200713
  Serious: Yes (Hospitalization, Other)
  Sender: FDA-Public Use
  Company Number: US-ROCHE-2428449

PATIENT
  Sex: Male

DRUGS (8)
  1. ALBUTEROL [SALBUTAMOL] [Concomitant]
     Active Substance: ALBUTEROL
  2. OCREVUS [Suspect]
     Active Substance: OCRELIZUMAB
     Indication: MULTIPLE SCLEROSIS
     Dosage: DATE OF TREATMENT: 23/APR/2019, 10/SEP/2019, 29/OCT/2019, 20/MAY/2020
     Route: 042
  3. METHYLPREDNISOLON [METHYLPREDNISOLONE] [Concomitant]
     Active Substance: METHYLPREDNISOLONE
     Route: 042
  4. CHOLECALCIFEROL [Concomitant]
     Active Substance: CHOLECALCIFEROL
  5. DIPHENHYDRAMINE. [Concomitant]
     Active Substance: DIPHENHYDRAMINE
     Route: 065
  6. ACETAMINOPHENE [Concomitant]
     Active Substance: ACETAMINOPHEN
     Route: 065
  7. FLUTICASONE. [Concomitant]
     Active Substance: FLUTICASONE
     Route: 065
  8. RANITIDINE. [Concomitant]
     Active Substance: RANITIDINE

REACTIONS (4)
  - Abdominal discomfort [Unknown]
  - Infection [Unknown]
  - Fatigue [Unknown]
  - Magnetic resonance imaging brain abnormal [Unknown]
